FAERS Safety Report 10260447 (Version 3)
Quarter: 2014Q4

REPORT INFORMATION
  Report Type: Spontaneous
  Country: US (occurrence: US)
  Receive Date: 20140625
  Receipt Date: 20141201
  Transmission Date: 20150528
  Serious: Yes (Congenital Anomaly, Other)
  Sender: FDA-Public Use
  Company Number: US-ELI_LILLY_AND_COMPANY-US201406008619

PATIENT
  Age: 0 Day

DRUGS (1)
  1. FLUOXETINE HYDROCHLORIDE. [Suspect]
     Active Substance: FLUOXETINE HYDROCHLORIDE
     Indication: PRODUCT USED FOR UNKNOWN INDICATION
     Dosage: UNK
     Route: 064

REACTIONS (8)
  - Blindness congenital [Unknown]
  - Foetal growth restriction [Recovered/Resolved]
  - Foetal exposure during pregnancy [Recovered/Resolved]
  - Heart rate decreased [Recovered/Resolved]
  - Foetal heart rate abnormal [Recovered/Resolved]
  - Limb reduction defect [Unknown]
  - Small for dates baby [Recovered/Resolved]
  - Amniotic band syndrome [Unknown]

NARRATIVE: CASE EVENT DATE: 19981002
